FAERS Safety Report 4802483-1 (Version None)
Quarter: 2005Q4

REPORT INFORMATION
  Report Type: 
  Country: None (occurrence: None)
  Receive Date: 20051014
  Receipt Date: 20041130
  Transmission Date: 20060501
  Serious: Yes (Hospitalization, Other)
  Sender: FDA-Public Use
  Company Number: 2004102750

PATIENT
  Sex: Female

DRUGS (1)
  1. NEURONTIN [Suspect]
     Indication: BIPOLAR DISORDER
     Dates: start: 20000101, end: 20040101

REACTIONS (8)
  - ACCIDENT [None]
  - COMPLEX REGIONAL PAIN SYNDROME [None]
  - DEPRESSION [None]
  - DIZZINESS [None]
  - DYSPEPSIA [None]
  - NAUSEA [None]
  - SUICIDE ATTEMPT [None]
  - VISION BLURRED [None]
